FAERS Safety Report 8249613 (Version 2)
Quarter: 2012Q4

REPORT INFORMATION
  Report Type: 
  Country: US (occurrence: US)
  Receive Date: 20111117
  Receipt Date: 20121221
  Transmission Date: 20130627
  Serious: Yes (Hospitalization)
  Sender: FDA-Public Use
  Company Number: US-GLAXOSMITHKLINE-A0910429A

PATIENT
  Age: 67 Year
  Sex: Male

DRUGS (1)
  1. AVANDIA [Suspect]
     Indication: DIABETES MELLITUS
     Dosage: 4MG Per day
     Route: 048
     Dates: start: 200003, end: 200211

REACTIONS (4)
  - Angina unstable [Recovering/Resolving]
  - Transient ischaemic attack [Unknown]
  - Cardiac failure congestive [Recovering/Resolving]
  - Coronary artery disease [Recovering/Resolving]
